FAERS Safety Report 4951903-0 (Version None)
Quarter: 2006Q1

REPORT INFORMATION
  Report Type: 
  Country: None (occurrence: None)
  Receive Date: 20060323
  Receipt Date: 20060105
  Transmission Date: 20060701
  Serious: Yes (Disabling)
  Sender: FDA-Public Use
  Company Number: US-MERCK-0601USA01027

PATIENT
  Age: 41 Year
  Sex: Female

DRUGS (6)
  1. COGENTIN [Suspect]
     Indication: DYSTONIA
     Route: 048
     Dates: start: 20010101
  2. DROPERIDOL [Suspect]
     Indication: GASTROINTESTINAL INFECTION
     Route: 065
  3. DIPHENHYDRAMINE HYDROCHLORIDE [Concomitant]
     Indication: DYSTONIA
     Route: 065
  4. TRIHEXYPHENIDYL HYDROCHLORIDE [Concomitant]
     Route: 065
  5. ESTROGENS (UNSPECIFIED) [Concomitant]
     Route: 065
  6. COMPAZINE [Suspect]
     Route: 065

REACTIONS (2)
  - DRUG INEFFECTIVE [None]
  - DYSTONIA [None]
